FAERS Safety Report 9381495 (Version 9)
Quarter: 2014Q1

REPORT INFORMATION
  Report Type: Spontaneous
  Country: IE (occurrence: IE)
  Receive Date: 20130703
  Receipt Date: 20140213
  Transmission Date: 20141002
  Serious: Yes (Hospitalization, Disabling, Other)
  Sender: FDA-Public Use
  Company Number: IE-MPIJNJ-2013-05068

PATIENT
  Sex: 0

DRUGS (13)
  1. VELCADE [Suspect]
     Indication: PLASMA CELL MYELOMA
     Dosage: 1.3 MG/M2, CYCLIC
     Route: 042
     Dates: start: 20101115
  2. VELCADE [Suspect]
     Dosage: 1.3 MG/M2, CYCLIC
     Route: 065
     Dates: start: 201304
  3. VELCADE [Suspect]
     Dosage: 1.3 MG/M2, UNK
     Route: 058
     Dates: start: 20130528
  4. DICLOFENAC [Suspect]
     Dosage: 200 MG, UNK
  5. INNOHEP                            /00889602/ [Concomitant]
  6. VALTRAX [Concomitant]
  7. LANSOPRAZOLE [Concomitant]
  8. STILNOCT [Concomitant]
  9. LUSTRAL [Concomitant]
  10. DEXAMETHASONE [Concomitant]
  11. PANADOL                            /00020001/ [Concomitant]
  12. OXYNORM [Concomitant]
  13. OXYCONTIN [Concomitant]

REACTIONS (7)
  - Abasia [Not Recovered/Not Resolved]
  - Plasmacytoma [Not Recovered/Not Resolved]
  - Pain in extremity [Unknown]
  - Hypoaesthesia [Unknown]
  - Pain in extremity [Unknown]
  - Local swelling [Unknown]
  - Overdose [Unknown]
